FAERS Safety Report 4268039-7 (Version None)
Quarter: 2004Q1

REPORT INFORMATION
  Report Type: 
  Country: None (occurrence: None)
  Receive Date: 20040109
  Receipt Date: 20040109
  Transmission Date: 20041129
  Serious: Yes (Death)
  Sender: FDA-Public Use
  Company Number: None

PATIENT
  Age: 66 Year
  Sex: Male
  Weight: 113.4 kg

DRUGS (2)
  1. PREDNISONE [Suspect]
     Indication: POLYMYOSITIS
     Dosage: ORAL
     Route: 048
     Dates: start: 20000320, end: 20000620
  2. METHOTREXATE [Suspect]
     Indication: POLYMYOSITIS
     Dates: start: 20000620, end: 20000820

REACTIONS (8)
  - DIVERTICULAR PERFORATION [None]
  - DUODENAL ULCER [None]
  - GASTROINTESTINAL HAEMORRHAGE [None]
  - HYPOTENSION [None]
  - INTESTINAL PERFORATION [None]
  - PYREXIA [None]
  - SEPSIS [None]
  - TACHYCARDIA [None]
